FAERS Safety Report 8961922 (Version 2)
Quarter: 2012Q4

REPORT INFORMATION
  Report Type: 
  Country: US (occurrence: US)
  Receive Date: 20121212
  Receipt Date: 20121214
  Transmission Date: 20130627
  Serious: Yes (Other)
  Sender: FDA-Public Use
  Company Number: US-ASTRAZENECA-2012SE22826

PATIENT
  Age: 62 Year
  Sex: Male
  Weight: 92.1 kg

DRUGS (19)
  1. SEROQUEL XR [Suspect]
     Indication: SINUSITIS
     Route: 048
  2. SEROQUEL XR [Suspect]
     Indication: BIPOLAR I DISORDER
     Route: 048
  3. SEROQUEL XR [Suspect]
     Indication: GASTRIC DISORDER
     Route: 048
  4. SEROQUEL XR [Suspect]
     Indication: SLEEP DISORDER
     Route: 048
  5. SEROQUEL XR [Suspect]
     Indication: SINUSITIS
     Route: 048
  6. SEROQUEL XR [Suspect]
     Indication: BIPOLAR I DISORDER
     Route: 048
  7. SEROQUEL XR [Suspect]
     Indication: GASTRIC DISORDER
     Route: 048
  8. SEROQUEL XR [Suspect]
     Indication: SLEEP DISORDER
     Route: 048
  9. ASPIRIN [Concomitant]
     Indication: STENT PLACEMENT
  10. FE SULFATE [Concomitant]
     Indication: ANAEMIA
     Dosage: DAILY
     Route: 048
     Dates: start: 1995
  11. LOPRESSOR [Concomitant]
     Indication: HYPERTENSION
     Route: 048
     Dates: start: 1995
  12. METFORMIN [Concomitant]
     Indication: GLUCOSE TOLERANCE IMPAIRED
     Route: 048
     Dates: start: 2002
  13. VALIUM [Concomitant]
     Indication: ANXIETY
     Route: 048
     Dates: start: 2007
  14. TEGRETOL XR [Concomitant]
     Indication: CONVULSION
     Route: 048
     Dates: start: 19960606
  15. TEGRETOL XR [Concomitant]
     Indication: CONVULSION
     Route: 048
     Dates: start: 19960706
  16. LEVETIRACETAM [Concomitant]
     Indication: CONVULSION
     Route: 048
     Dates: start: 1995
  17. LEVETIRACETAM [Concomitant]
     Indication: CONVULSION
     Route: 048
     Dates: start: 19960706
  18. TESTERONE [Concomitant]
     Indication: INTESTINAL RESECTION
     Route: 048
  19. TESTERONE [Concomitant]
     Indication: INTESTINAL RESECTION
     Route: 048
     Dates: start: 19960706

REACTIONS (17)
  - Convulsion [Unknown]
  - Insomnia [Unknown]
  - Crohn^s disease [Unknown]
  - Cardiac disorder [Unknown]
  - Anxiety [Not Recovered/Not Resolved]
  - Flatulence [Not Recovered/Not Resolved]
  - Gastrointestinal motility disorder [Not Recovered/Not Resolved]
  - Hiccups [Not Recovered/Not Resolved]
  - Nausea [Not Recovered/Not Resolved]
  - Feeling abnormal [Unknown]
  - Abdominal discomfort [Unknown]
  - Eructation [Unknown]
  - Crying [Unknown]
  - Tremor [Not Recovered/Not Resolved]
  - Dyspepsia [Not Recovered/Not Resolved]
  - Drug ineffective for unapproved indication [Not Recovered/Not Resolved]
  - Drug dose omission [Unknown]
